FAERS Safety Report 11594581 (Version 1)
Quarter: 2015Q4

REPORT INFORMATION
  Report Type: Spontaneous
  Country: US (occurrence: US)
  Receive Date: 20151005
  Receipt Date: 20151005
  Transmission Date: 20160304
  Serious: No
  Sender: FDA-Public Use
  Company Number: US-MEDA-2015090050

PATIENT
  Sex: Female
  Weight: 44 kg

DRUGS (2)
  1. AZELASTINE HYDROCHLORIDE. [Suspect]
     Active Substance: AZELASTINE HYDROCHLORIDE
     Dates: start: 2014, end: 2014
  2. ASTELIN [Concomitant]
     Active Substance: AZELASTINE HYDROCHLORIDE
     Dates: start: 1998

REACTIONS (4)
  - Dizziness [Recovered/Resolved]
  - Balance disorder [Recovered/Resolved]
  - Disorientation [Recovered/Resolved]
  - Visual impairment [Recovered/Resolved]

NARRATIVE: CASE EVENT DATE: 2014
